FAERS Safety Report 9298265 (Version 1)
Quarter: 2013Q2

REPORT INFORMATION
  Report Type: Spontaneous
  Country: US (occurrence: US)
  Receive Date: 20130520
  Receipt Date: 20130520
  Transmission Date: 20140414
  Serious: Yes (Hospitalization)
  Sender: FDA-Public Use
  Company Number: US-JNJFOC-20130505701

PATIENT
  Sex: Male

DRUGS (4)
  1. RISPERDAL [Suspect]
     Indication: SCHIZOPHRENIA
     Dosage: 6MG/PILL/2-3MG PILLS/ONCE DAILY/ORAL
     Route: 048
     Dates: end: 2013
  2. INVEGA SUSTENNA [Suspect]
     Indication: SCHIZOPHRENIA
     Route: 030
     Dates: start: 20130422
  3. TOFRANIL-PM [Concomitant]
     Route: 048
  4. TRILEPTAL [Concomitant]
     Route: 048

REACTIONS (2)
  - Hospitalisation [Recovered/Resolved]
  - Gynaecomastia [Not Recovered/Not Resolved]
